FAERS Safety Report 9290063 (Version 1)
Quarter: 2012Q4

REPORT INFORMATION
  Report Type: Spontaneous
  Country: US (occurrence: None)
  Receive Date: 20121130
  Receipt Date: 20121130
  Transmission Date: 20130627
  Serious: Yes (Hospitalization)
  Sender: FDA-Public Use
  Company Number: TPA2012A08264

PATIENT
  Age: 44 Year
  Sex: Male
  Weight: 85.28 kg

DRUGS (6)
  1. EDARBYCLOR [Suspect]
     Indication: BLOOD PRESSURE ABNORMAL
     Dosage: 1 in 1 D
     Route: 048
     Dates: start: 20120919, end: 20120928
  2. EDARBYCLOR [Suspect]
     Indication: HYPERTENSION
     Dosage: 1 in 1 D
     Route: 048
     Dates: start: 20120919, end: 20120928
  3. VERAPAMIL (VERAPAMIL) [Concomitant]
  4. FENOFIBRATE (FENOFIBRATE) [Concomitant]
  5. EFFEXOR XR (VENLAFAXINE HYDROCHLORIDE) (75 MILLIGRAM, CAPSULE) (VENLAFAXINE HYDROCHLORIDE) [Concomitant]
  6. ASPIRIN (ACETYLSALICYLIC ACID) [Concomitant]

REACTIONS (5)
  - Pollakiuria [None]
  - Blood sodium decreased [None]
  - Asthenia [None]
  - Mental status changes [None]
  - Muscle spasms [None]
